FAERS Safety Report 23382363 (Version 1)
Quarter: 2024Q1

REPORT INFORMATION
  Report Type: Spontaneous
  Country: US (occurrence: US)
  Receive Date: 20240109
  Receipt Date: 20240109
  Transmission Date: 20240409
  Serious: Yes (Other)
  Sender: FDA-Public Use
  Company Number: US-SIGMAPHARM LABORATORIES, LLC-2023SIG00018

PATIENT
  Sex: Female
  Weight: 87.075 kg

DRUGS (3)
  1. LIOTHYRONINE SODIUM [Suspect]
     Active Substance: LIOTHYRONINE SODIUM
     Indication: Hypothyroidism
     Dosage: 5 MG, 2X/DAY
     Route: 048
     Dates: start: 20230218, end: 20230311
  2. T-4 TIROSINT [Concomitant]
     Dosage: 112 ?G, 1X/DAY
     Dates: start: 202209
  3. CALCITRIOL [Concomitant]
     Active Substance: CALCITRIOL
     Dosage: 0.5 ?G, 1X/DAY
     Dates: start: 2016

REACTIONS (4)
  - Cardiac flutter [Recovering/Resolving]
  - Heart rate increased [Recovering/Resolving]
  - Unevaluable event [Recovering/Resolving]
  - Product substitution issue [Unknown]

NARRATIVE: CASE EVENT DATE: 20230101
